APPROVED DRUG PRODUCT: AMINOSYN 10%
Active Ingredient: AMINO ACIDS
Strength: 10% (10GM/100ML)
Dosage Form/Route: INJECTABLE;INJECTION
Application: N017673 | Product #003
Applicant: ICU MEDICAL INC
Approved: Approved Prior to Jan 1, 1982 | RLD: No | RS: No | Type: DISCN